FAERS Safety Report 7603039-8 (Version None)
Quarter: 2011Q3

REPORT INFORMATION
  Report Type: 
  Country: None (occurrence: None)
  Receive Date: 20110712
  Receipt Date: 20110712
  Transmission Date: 20111222
  Serious: Yes (Disabling)
  Sender: FDA-Public Use
  Company Number: None

PATIENT
  Age: 68 Year
  Sex: Female
  Weight: 50 kg

DRUGS (14)
  1. CLONAZEPAM [Interacting]
  2. FISH OIL [Interacting]
  3. PHENYTOIN [Interacting]
  4. TRAZODONE HCL [Interacting]
  5. PRIVIGEN [Suspect]
     Indication: AUTOIMMUNE DISORDER
     Dosage: 30 GRAMS
     Route: 042
  6. PRIVIGEN [Suspect]
     Indication: ENCEPHALOPATHY
     Dosage: 30 GRAMS
     Route: 042
  7. ASPIRIN [Interacting]
  8. NAPROXEN (ALEVE) [Interacting]
  9. MULTIVITAMIN [Interacting]
  10. MELATONIN [Interacting]
  11. QUETIAPINE [Interacting]
  12. LEVOTHYROXINE SODIUM [Interacting]
  13. RESTASIS [Interacting]
  14. COQ10 [Interacting]

REACTIONS (2)
  - ENCEPHALOPATHY [None]
  - HAEMOLYTIC ANAEMIA [None]
